FAERS Safety Report 5670490-5 (Version None)
Quarter: 2008Q1

REPORT INFORMATION
  Report Type: 
  Country: None (occurrence: None)
  Receive Date: 20080318
  Receipt Date: 20080305
  Transmission Date: 20080703
  Serious: Yes (Death, Hospitalization)
  Sender: FDA-Public Use
  Company Number: US-SOLVAY-00208000980

PATIENT
  Age: 30007 Day
  Sex: Female
  Weight: 41 kg

DRUGS (1)
  1. CREON [Suspect]
     Indication: COELIAC DISEASE
     Dosage: DAILY DOSE: 12 DOSAGE FORM
     Route: 048
     Dates: start: 19890101, end: 20070610

REACTIONS (3)
  - GALLBLADDER DISORDER [None]
  - MALNUTRITION [None]
  - MYOCARDIAL INFARCTION [None]
